FAERS Safety Report 19959612 (Version 1)
Quarter: 2021Q4

REPORT INFORMATION
  Report Type: Spontaneous
  Country: US (occurrence: US)
  Receive Date: 20211015
  Receipt Date: 20211015
  Transmission Date: 20220303
  Serious: Yes (Disabling)
  Sender: FDA-Public Use
  Company Number: None

PATIENT
  Age: 66 Year
  Sex: Female
  Weight: 81 kg

DRUGS (10)
  1. METHYLPREDNISOLONE [Suspect]
     Active Substance: METHYLPREDNISOLONE
     Indication: Arthritis
     Dosage: ?          QUANTITY:21 TABLET(S);OTHER FREQUENCY:6,5,4,3,2,1 PER DA;
     Route: 048
     Dates: start: 20211006, end: 20211011
  2. ZOLPIDEM [Concomitant]
     Active Substance: ZOLPIDEM TARTRATE
  3. LOSARTAN [Concomitant]
     Active Substance: LOSARTAN
  4. BUPROPION [Concomitant]
     Active Substance: BUPROPION
  5. ASPIRIN [Concomitant]
     Active Substance: ASPIRIN
  6. DIPHENHYDRAMINE [Concomitant]
     Active Substance: DIPHENHYDRAMINE
  7. VITAMIN B COMPLEX [Concomitant]
     Active Substance: CYANOCOBALAMIN\DEXPANTHENOL\NIACINAMIDE\PYRIDOXINE HYDROCHLORIDE\RIBOFLAVIN 5^-PHOSPHATE SODIUM\THIA
  8. MELATONIN [Concomitant]
     Active Substance: MELATONIN
  9. VITAMINS D3 AND C [Concomitant]
  10. APPLE CIDER VINEGAR [Concomitant]
     Active Substance: APPLE CIDER VINEGAR

REACTIONS (5)
  - Vision blurred [None]
  - Dizziness [None]
  - Nausea [None]
  - Asthenia [None]
  - Blood pressure increased [None]

NARRATIVE: CASE EVENT DATE: 20211014
